FAERS Safety Report 6088095-3 (Version None)
Quarter: 2009Q1

REPORT INFORMATION
  Report Type: 
  Country: None (occurrence: None)
  Receive Date: 20090218
  Receipt Date: 20090205
  Transmission Date: 20090719
  Serious: Yes (Death, Other)
  Sender: FDA-Public Use
  Company Number: 2008000641

PATIENT
  Age: 58 Year
  Sex: Female

DRUGS (9)
  1. ERLOTINIB (ERLOTINIB HCL) (TABLET) (ERLOTINIB HCL) [Suspect]
     Indication: LUNG ADENOCARCINOMA
     Dosage: (150 MG, QD) ,ORAL
     Route: 048
     Dates: start: 20080109, end: 20080215
  2. ZANTAC 150 [Concomitant]
  3. LASIX [Concomitant]
  4. ALDACTONE [Concomitant]
  5. RIZE (CLOTIAZEPAM) [Concomitant]
  6. DEPAS (ETIZOLAM) [Concomitant]
  7. ISOSORBIDE (ISOSORBIDE) [Concomitant]
  8. GASMOTIN (MOSAPRIDE CITRATE) [Concomitant]
  9. AVELOX [Concomitant]

REACTIONS (8)
  - ANAEMIA [None]
  - DEPRESSED LEVEL OF CONSCIOUSNESS [None]
  - DIVERTICULUM [None]
  - DUODENAL ULCER [None]
  - MALIGNANT NEOPLASM PROGRESSION [None]
  - MELAENA [None]
  - METASTASES TO BONE [None]
  - METASTASES TO CENTRAL NERVOUS SYSTEM [None]
